FAERS Safety Report 4847509-4 (Version None)
Quarter: 2005Q4

REPORT INFORMATION
  Report Type: 
  Country: None (occurrence: None)
  Receive Date: 20051207
  Receipt Date: 20051122
  Transmission Date: 20060501
  Serious: Yes (Hospitalization, Other)
  Sender: FDA-Public Use
  Company Number: ESWYE148517NOV05

PATIENT
  Sex: Female

DRUGS (6)
  1. ENBREL [Suspect]
     Indication: RHEUMATOID ARTHRITIS
     Route: 058
     Dates: start: 20050801
  2. ISONIAZID [Suspect]
     Indication: TUBERCULIN TEST POSITIVE
     Dosage: UNKNOWN
  3. DACORTIN [Concomitant]
     Route: 065
  4. LUMINAL [Concomitant]
     Route: 065
  5. OMEPRAZOLE [Concomitant]
     Dosage: UNKNOWN
     Route: 065
  6. CARBAMAZEPINE [Concomitant]
     Dosage: UNKNOWN
     Route: 065

REACTIONS (5)
  - ANTICONVULSANT DRUG LEVEL INCREASED [None]
  - COORDINATION ABNORMAL [None]
  - DEMYELINATION [None]
  - DIZZINESS [None]
  - OPTIC NEURITIS [None]
